FAERS Safety Report 24730184 (Version 4)
Quarter: 2025Q3

REPORT INFORMATION
  Report Type: Spontaneous
  Country: EU (occurrence: EU)
  Receive Date: 20241213
  Receipt Date: 20250708
  Transmission Date: 20251021
  Serious: Yes (Hospitalization, Other)
  Sender: ALKEM
  Company Number: None

PATIENT
  Age: 43 Year
  Sex: Male

DRUGS (12)
  1. DIMETHYL FUMARATE [Suspect]
     Active Substance: DIMETHYL FUMARATE
     Indication: Relapsing-remitting multiple sclerosis
     Route: 065
     Dates: start: 2015
  2. DIMETHYL FUMARATE [Suspect]
     Active Substance: DIMETHYL FUMARATE
     Indication: Multiple sclerosis
  3. FINGOLIMOD [Suspect]
     Active Substance: FINGOLIMOD
     Indication: Relapsing-remitting multiple sclerosis
     Route: 065
  4. METHYLPREDNISOLONE [Suspect]
     Active Substance: METHYLPREDNISOLONE
     Indication: Relapsing-remitting multiple sclerosis
     Dosage: 1 GRAM, QD (3-DAY HIGH-DOSE CORTICOSTEROID PULSE THERAPY)
     Route: 065
  5. INTERFERON BETA [Suspect]
     Active Substance: INTERFERON BETA
     Indication: Relapsing-remitting multiple sclerosis
     Route: 065
  6. INTERFERON BETA [Suspect]
     Active Substance: INTERFERON BETA
     Indication: Multiple sclerosis
  7. KESIMPTA [Suspect]
     Active Substance: OFATUMUMAB
     Indication: Relapsing-remitting multiple sclerosis
     Route: 065
     Dates: start: 202303
  8. KESIMPTA [Suspect]
     Active Substance: OFATUMUMAB
     Route: 065
     Dates: start: 202212
  9. OCRELIZUMAB [Suspect]
     Active Substance: OCRELIZUMAB
     Indication: Relapsing-remitting multiple sclerosis
     Route: 065
     Dates: start: 201804
  10. OCRELIZUMAB [Suspect]
     Active Substance: OCRELIZUMAB
     Route: 065
     Dates: start: 202205
  11. OCRELIZUMAB [Suspect]
     Active Substance: OCRELIZUMAB
     Route: 065
     Dates: start: 202209
  12. NATALIZUMAB [Concomitant]
     Active Substance: NATALIZUMAB
     Indication: Relapsing-remitting multiple sclerosis
     Route: 065

REACTIONS (14)
  - Neutropenia [Recovering/Resolving]
  - Gait disturbance [Recovering/Resolving]
  - Pyrexia [Recovering/Resolving]
  - Periventricular leukomalacia [Unknown]
  - Leukopenia [Recovering/Resolving]
  - Dizziness [Recovering/Resolving]
  - Asthenia [Recovering/Resolving]
  - Fungal infection [Unknown]
  - Lymphopenia [Recovering/Resolving]
  - Infection [Recovering/Resolving]
  - Vomiting [Recovering/Resolving]
  - Drug ineffective [Unknown]
  - Skin infection [Recovering/Resolving]
  - Upper respiratory tract infection [Recovering/Resolving]
